FAERS Safety Report 10930805 (Version 1)
Quarter: 2015Q1

REPORT INFORMATION
  Report Type: Spontaneous
  Country: US (occurrence: US)
  Receive Date: 20150319
  Receipt Date: 20150319
  Transmission Date: 20150721
  Serious: No
  Sender: FDA-Public Use
  Company Number: US-BIOMARINAP-US-2015-105803

PATIENT
  Age: 14 Year
  Sex: Female
  Weight: 29.2 kg

DRUGS (1)
  1. NAGLAZYME [Suspect]
     Active Substance: GALSULFASE
     Indication: MUCOPOLYSACCHARIDOSIS VI
     Dosage: 30 MG, QW
     Route: 042
     Dates: start: 20060807

REACTIONS (3)
  - Infusion site inflammation [Recovered/Resolved]
  - Middle ear effusion [Recovered/Resolved]
  - Otitis media [Recovered/Resolved]

NARRATIVE: CASE EVENT DATE: 20150312
